FAERS Safety Report 22102129 (Version 1)
Quarter: 2023Q1

REPORT INFORMATION
  Report Type: Spontaneous
  Country: US (occurrence: None)
  Receive Date: 20230315
  Receipt Date: 20230315
  Transmission Date: 20230418
  Serious: Yes (Disabling, Other)
  Sender: FDA-Public Use
  Company Number: None

PATIENT
  Age: 61 Year
  Sex: Female
  Weight: 54 kg

DRUGS (1)
  1. CAPLYTA [Suspect]
     Active Substance: LUMATEPERONE
     Indication: Bipolar disorder
     Dosage: OTHER QUANTITY : 1 CAPSULE(S)?FREQUENCY : AT BEDTIME?
     Route: 048
     Dates: start: 20230215, end: 20230306

REACTIONS (3)
  - Pain [None]
  - Pain [None]
  - Fibromyalgia [None]

NARRATIVE: CASE EVENT DATE: 20230215
